FAERS Safety Report 6652477-9 (Version None)
Quarter: 2010Q1

REPORT INFORMATION
  Report Type: 
  Country: None (occurrence: None)
  Receive Date: 20100323
  Receipt Date: 20100315
  Transmission Date: 20100710
  Serious: Yes (Hospitalization)
  Sender: FDA-Public Use
  Company Number: 2010SP016098

PATIENT
  Age: 18 Month
  Sex: Male
  Weight: 13.4 kg

DRUGS (2)
  1. CELESTONE [Suspect]
     Indication: LARYNGITIS
     Dosage: 140 GTT;QD;PO
     Route: 048
     Dates: start: 20091221, end: 20091223
  2. MAXILASE [Concomitant]

REACTIONS (5)
  - AGITATION [None]
  - HYPERTONIA [None]
  - LACRIMATION INCREASED [None]
  - MUSCULOSKELETAL STIFFNESS [None]
  - SCREAMING [None]
